FAERS Safety Report 5407067-2 (Version None)
Quarter: 2007Q3

REPORT INFORMATION
  Report Type: 
  Country: None (occurrence: None)
  Receive Date: 20070807
  Receipt Date: 20070314
  Transmission Date: 20080115
  Serious: Yes (Other)
  Sender: FDA-Public Use
  Company Number: US-ASTRAZENECA-2007UW04958

PATIENT
  Age: 60 Year
  Sex: Male
  Weight: 144.1 kg

DRUGS (12)
  1. CRESTOR [Suspect]
     Route: 048
     Dates: end: 20070301
  2. COREG CR [Concomitant]
  3. AVAPRO [Concomitant]
  4. INSPRA [Concomitant]
  5. LASIX [Concomitant]
  6. ZETIA [Concomitant]
  7. INSULIN [Concomitant]
  8. GLUCOPHAGE [Concomitant]
  9. GLUCOTROL [Concomitant]
  10. NIASPAN [Concomitant]
  11. PLAVIX [Concomitant]
  12. ASPIRIN [Concomitant]

REACTIONS (4)
  - ARTHRALGIA [None]
  - BLOOD CREATINE PHOSPHOKINASE INCREASED [None]
  - MYALGIA [None]
  - TENDON RUPTURE [None]
